FAERS Safety Report 22084540 (Version 1)
Quarter: 2023Q1

REPORT INFORMATION
  Report Type: Spontaneous
  Country: JP (occurrence: JP)
  Receive Date: 20230310
  Receipt Date: 20230310
  Transmission Date: 20230417
  Serious: Yes (Hospitalization, Other)
  Sender: FDA-Public Use
  Company Number: JP-BAYER-2022A080471

PATIENT
  Age: 30 Year
  Sex: Female

DRUGS (2)
  1. MIRENA [Suspect]
     Active Substance: LEVONORGESTREL
     Indication: Dysmenorrhoea
     Dosage: 20?G/DAY
     Route: 015
     Dates: start: 20171004, end: 20220214
  2. MIRENA [Suspect]
     Active Substance: LEVONORGESTREL
     Indication: Contraception

REACTIONS (7)
  - Uterine perforation [Recovered/Resolved]
  - Peritoneal adhesions [None]
  - Device breakage [None]
  - Complication of device removal [None]
  - Device difficult to use [None]
  - Device issue [None]
  - Device difficult to use [None]

NARRATIVE: CASE EVENT DATE: 20171004
